FAERS Safety Report 5648468-7 (Version None)
Quarter: 2008Q1

REPORT INFORMATION
  Report Type: 
  Country: None (occurrence: None)
  Receive Date: 20080304
  Receipt Date: 20080222
  Transmission Date: 20080703
  Serious: Yes (Other)
  Sender: FDA-Public Use
  Company Number: PHBS2008KW02676

PATIENT
  Age: 43 Year
  Sex: Male

DRUGS (4)
  1. GLEEVEC [Suspect]
     Indication: CHRONIC MYELOID LEUKAEMIA
     Dosage: 200 MG/D
     Route: 065
     Dates: start: 20021201
  2. GLEEVEC [Suspect]
     Dosage: 300 MG/D
     Route: 065
     Dates: start: 20030901
  3. GLEEVEC [Suspect]
     Dosage: 400 MG/D
     Dates: start: 20031001
  4. GLEEVEC [Suspect]
     Dosage: 600 MG/D
     Dates: start: 20060401

REACTIONS (2)
  - ACUTE LYMPHOCYTIC LEUKAEMIA [None]
  - CYTOGENETIC ABNORMALITY [None]
